FAERS Safety Report 7911500-1 (Version None)
Quarter: 2011Q4

REPORT INFORMATION
  Report Type: 
  Country: None (occurrence: None)
  Receive Date: 20111114
  Receipt Date: 20111031
  Transmission Date: 20120403
  Serious: Yes (Hospitalization)
  Sender: FDA-Public Use
  Company Number: NL-MYLANLABS-2011S1022860

PATIENT
  Age: 5 Decade
  Sex: Male

DRUGS (19)
  1. METOPROLOL [Concomitant]
     Dosage: 200MG
     Route: 065
  2. TEMAZEPAM [Concomitant]
     Dosage: 10 MG/DAY
     Route: 065
  3. DIPYRIDAMOLE [Concomitant]
     Indication: HYPERTENSION
     Dosage: 200MG
     Route: 065
  4. ESOMEPRAZOLE [Concomitant]
     Dosage: 40 MG/DAY
     Route: 065
  5. FOLIC ACID [Concomitant]
     Indication: FOLATE DEFICIENCY
     Route: 065
  6. OXAZEPAM [Concomitant]
     Dosage: 20 MG/DAY
     Route: 065
  7. CYANOCOBALAMIN [Concomitant]
     Indication: VITAMIN B12 DEFICIENCY
     Route: 065
  8. QUETIAPINE [Suspect]
     Indication: PSYCHOTIC DISORDER
     Dosage: 75 MG/DAY
     Route: 065
  9. CLOZAPINE [Suspect]
     Indication: PSYCHOTIC DISORDER
     Dosage: 325 MG/DAY
     Route: 065
  10. CLOZAPINE [Suspect]
     Dosage: 250 MG/DAY WITHIN 10 DAYS
     Route: 065
  11. OXAZEPAM [Concomitant]
     Dosage: 40 MG/DAY
     Route: 065
  12. HYDROCHLOROTHIAZIDE [Concomitant]
     Indication: HYPERTENSION
     Dosage: 25MG
     Route: 065
  13. CARBASALATE CALCIUM [Concomitant]
     Indication: HYPERTENSION
     Dosage: 100MG
     Route: 065
  14. ENALAPRIL MALEATE [Suspect]
     Indication: HYPERTENSION
     Dosage: 10 MG/DAY
     Route: 065
  15. METOPROLOL [Concomitant]
     Indication: HYPERTENSION
     Dosage: 50 MG/DAY, DOSAGE LATER DOUBLED
     Route: 065
  16. CLOZAPINE [Suspect]
     Dosage: 500 MG/DAY AFTER 19 DAYS
     Route: 065
  17. HALOPERIDOL [Concomitant]
     Indication: PSYCHOTIC DISORDER
     Dosage: 5 MG/DAY
     Route: 065
  18. SIMVASTATIN [Concomitant]
     Indication: CEREBROVASCULAR ACCIDENT
     Dosage: 40 MG/DAY
     Route: 065
  19. BARNIDIPINE [Concomitant]
     Indication: HYPERTENSION
     Dosage: 10 MG/DAY
     Route: 065

REACTIONS (6)
  - HYPERTENSION [None]
  - HEMIPARESIS [None]
  - ANGIOEDEMA [None]
  - HYPERTENSIVE CRISIS [None]
  - LACUNAR INFARCTION [None]
  - PERIORBITAL OEDEMA [None]
